FAERS Safety Report 8984263 (Version 1)
Quarter: 2012Q4

REPORT INFORMATION
  Report Type: 
  Country: SE (occurrence: SE)
  Receive Date: 20121226
  Receipt Date: 20121226
  Transmission Date: 20130627
  Serious: Yes (Hospitalization, Other)
  Sender: FDA-Public Use
  Company Number: SE-AMGEN-SWESP2012082666

PATIENT
  Age: 57 Year
  Sex: Female

DRUGS (6)
  1. ENBREL [Suspect]
     Indication: PSORIATIC ARTHROPATHY
     Dosage: UNK
     Dates: end: 201107
  2. HUMIRA [Suspect]
     Indication: PSORIATIC ARTHROPATHY
     Dosage: 40 mg, every second week
     Dates: start: 20110718, end: 20121015
  3. KALCIPOS-D [Concomitant]
     Dosage: UNK
  4. OMEPRAZOL                          /00661201/ [Concomitant]
     Dosage: UNK
  5. ORUDIS [Concomitant]
     Dosage: UNK
  6. PREDNISOLON                        /00016201/ [Concomitant]
     Dosage: UNK

REACTIONS (1)
  - Breast cancer female [Unknown]
